FAERS Safety Report 9157161 (Version 2)
Quarter: 2013Q1

REPORT INFORMATION
  Report Type: Spontaneous
  Country: IT (occurrence: IT)
  Receive Date: 20130312
  Receipt Date: 20130321
  Transmission Date: 20140127
  Serious: Yes (Other)
  Sender: FDA-Public Use
  Company Number: IT-PFIZER INC-2013082937

PATIENT
  Age: 40 Year
  Sex: Female

DRUGS (1)
  1. QUARK [Suspect]
     Indication: HYPERTENSION
     Dosage: 10 MG, DAILY
     Route: 048
     Dates: start: 20110112, end: 20121214

REACTIONS (5)
  - Arrhythmia [Recovering/Resolving]
  - Dyspnoea [Recovering/Resolving]
  - Pain in extremity [Recovering/Resolving]
  - Panic attack [Recovering/Resolving]
  - Paraesthesia [Recovering/Resolving]
